FAERS Safety Report 22396950 (Version 1)
Quarter: 2023Q2

REPORT INFORMATION
  Report Type: Spontaneous
  Country: MX (occurrence: MX)
  Receive Date: 20230602
  Receipt Date: 20230602
  Transmission Date: 20230722
  Serious: Yes (Death)
  Sender: FDA-Public Use
  Company Number: MX-STRIDES ARCOLAB LIMITED-2023SP008265

PATIENT

DRUGS (15)
  1. PREDNISOLONE [Suspect]
     Active Substance: PREDNISOLONE
     Indication: B-cell type acute leukaemia
     Dosage: 60 MILLIGRAM/SQ. METER (INDUCTION) (ON DAYS 1-29)
     Route: 048
  2. METHOTREXATE [Suspect]
     Active Substance: METHOTREXATE
     Indication: B-cell type acute leukaemia
     Dosage: 15 MILLIGRAM (TRIPLE INTRATHECAL THERAPY ON DAYS 8, 15, 22 AND 29)
     Route: 037
  3. METHOTREXATE [Suspect]
     Active Substance: METHOTREXATE
     Dosage: 100 MG/M2 (CONSOLIDATION) (ON DAYS 10, 20, 30, 40 [ EXACT ROUTE NOT STATED ],
     Route: 065
  4. METHOTREXATE [Suspect]
     Active Substance: METHOTREXATE
     Dosage: 15 MILLIGRAM (CONSOLIDATION)(TRIPLE INTRATHECAL THERAPY)
     Route: 037
  5. VINCRISTINE [Suspect]
     Active Substance: VINCRISTINE
     Indication: B-cell type acute leukaemia
     Dosage: 1.4 MILLIGRAM/SQ. METER (INDUCTION) (ON DAYS 8, 15, 22 AND 29)
     Route: 042
  6. VINCRISTINE [Suspect]
     Active Substance: VINCRISTINE
     Dosage: 1.4 MILLIGRAM/SQ. METER (CONSOLIDATION) (ON DAYS 10-30)
     Route: 042
  7. ASPARAGINASE [Suspect]
     Active Substance: ASPARAGINASE
     Indication: B-cell type acute leukaemia
     Dosage: UNK (INDUCTION)(6,000 UI/M2 ON DAYS 8, 10, 12, 15, 17, 19, 22, 24, 26.)
     Route: 030
  8. ASPARAGINASE [Suspect]
     Active Substance: ASPARAGINASE
     Dosage: UNK (CONSOLIDATION) (6,000 UI/M 2 ON DAYS 1, 11, 21, 31, 41)
     Route: 030
  9. MITOXANTRONE [Suspect]
     Active Substance: MITOXANTRONE HYDROCHLORIDE
     Indication: B-cell type acute leukaemia
     Dosage: 6 MILLIGRAM/SQ. METER (INDUCTION)(ON DAYS 8, 15, 22, 29)
     Route: 042
  10. RITUXIMAB [Suspect]
     Active Substance: RITUXIMAB
     Indication: B-cell type acute leukaemia
     Dosage: 375 MILLIGRAM/SQ. METER (INDUCTION)(ON DAYS 8-22)
     Route: 042
  11. CYTARABINE [Suspect]
     Active Substance: CYTARABINE
     Indication: B-cell type acute leukaemia
     Dosage: 50 MILLIGRAM (TRIPLE INTRATHECAL THERAPY ON DAYS 8, 15, 22 AND 29)
     Route: 037
  12. CYTARABINE [Suspect]
     Active Substance: CYTARABINE
     Dosage: 50 MILLIGRAM (CONSOLIDATION)
     Route: 065
  13. HYDROCORTISONE [Suspect]
     Active Substance: HYDROCORTISONE
     Indication: B-cell type acute leukaemia
     Dosage: 37.5 MILLIGRAM (TRIPLE INTRATHECAL THERAPY ON DAYS 8, 15, 22 AND 29)
     Route: 037
  14. HYDROCORTISONE [Suspect]
     Active Substance: HYDROCORTISONE
     Dosage: 37.5 MILLIGRAM (CONSOLIDATION)(ON DAYS 10 AND 30)
     Route: 065
  15. CYCLOPHOSPHAMIDE [Concomitant]
     Active Substance: CYCLOPHOSPHAMIDE
     Indication: B-cell type acute leukaemia
     Dosage: 1000 MG/M2 (ON DAY 1) (CONSOLIDATION )
     Route: 042

REACTIONS (1)
  - Pancreatitis [Fatal]
